FAERS Safety Report 9752567 (Version 4)
Quarter: 2014Q2

REPORT INFORMATION
  Report Type: Spontaneous
  Country: JP (occurrence: JP)
  Receive Date: 20131213
  Receipt Date: 20140421
  Transmission Date: 20141212
  Serious: Yes (Life-Threatening, Hospitalization)
  Sender: FDA-Public Use
  Company Number: JP-SA-2013SA129424

PATIENT
  Age: 74 Year
  Sex: Male
  Weight: 75 kg

DRUGS (10)
  1. ALLEGRA [Suspect]
     Indication: PRURITUS
     Route: 048
     Dates: end: 20131122
  2. ALLEGRA [Suspect]
     Indication: SEASONAL ALLERGY
     Route: 048
     Dates: end: 20131122
  3. MYSLEE [Suspect]
     Indication: INSOMNIA
     Route: 048
     Dates: start: 201306, end: 20131122
  4. AMARYL [Suspect]
     Indication: DIABETES MELLITUS
     Route: 048
     Dates: end: 20110930
  5. AMARYL [Suspect]
     Indication: DIABETES MELLITUS
     Route: 048
     Dates: start: 201201, end: 201211
  6. AMARYL [Suspect]
     Indication: DIABETES MELLITUS
     Route: 048
     Dates: start: 201306
  7. MEVALOTIN [Suspect]
     Indication: PRODUCT USED FOR UNKNOWN INDICATION
     Route: 048
     Dates: end: 20131122
  8. UNISIA [Suspect]
     Indication: HYPERTENSION
     Route: 048
     Dates: end: 20131122
  9. LIDUC M [Suspect]
     Indication: HYPERLIPIDAEMIA
     Route: 048
     Dates: end: 20131122
  10. AMLODIN [Suspect]
     Indication: HYPERTENSION
     Route: 048
     Dates: end: 20131122

REACTIONS (1)
  - Drug-induced liver injury [Recovered/Resolved]
